FAERS Safety Report 12296055 (Version 1)
Quarter: 2016Q2

REPORT INFORMATION
  Report Type: Spontaneous
  Country: US (occurrence: US)
  Receive Date: 20160422
  Receipt Date: 20160422
  Transmission Date: 20160815
  Serious: No
  Sender: FDA-Public Use
  Company Number: US-DRREDDYS-USA/USA/16/0076499

PATIENT
  Age: 43 Year
  Sex: Female
  Weight: 62.6 kg

DRUGS (1)
  1. ZENATANE [Suspect]
     Active Substance: ISOTRETINOIN
     Indication: ACNE
     Route: 048
     Dates: start: 20160205, end: 20160207

REACTIONS (5)
  - Injury [Unknown]
  - Hypoaesthesia [Unknown]
  - Pain in extremity [Unknown]
  - Burning sensation [Recovering/Resolving]
  - Thirst [Unknown]

NARRATIVE: CASE EVENT DATE: 20160205
